FAERS Safety Report 9478605 (Version 2)
Quarter: 2013Q3

REPORT INFORMATION
  Report Type: Report from Study
  Country: CN (occurrence: CN)
  Receive Date: 20130827
  Receipt Date: 20130830
  Transmission Date: 20140515
  Serious: Yes (Other)
  Sender: FDA-Public Use
  Company Number: CN-PFIZER INC-2013242784

PATIENT
  Age: 69 Year
  Sex: Female

DRUGS (12)
  1. DOXORUBICIN HCL [Suspect]
     Indication: NON-HODGKIN^S LYMPHOMA
     Dosage: UNK
  2. DOXORUBICIN HCL [Suspect]
     Indication: DIFFUSE LARGE B-CELL LYMPHOMA
  3. ETOPOSIDE [Suspect]
     Indication: NON-HODGKIN^S LYMPHOMA
     Dosage: UNK
  4. ETOPOSIDE [Suspect]
     Indication: DIFFUSE LARGE B-CELL LYMPHOMA
  5. CYCLOPHOSPHAMIDE [Suspect]
     Indication: NON-HODGKIN^S LYMPHOMA
     Dosage: UNK
  6. CYCLOPHOSPHAMIDE [Suspect]
     Indication: DIFFUSE LARGE B-CELL LYMPHOMA
  7. ONCOVIN [Suspect]
     Indication: NON-HODGKIN^S LYMPHOMA
     Dosage: UNK
  8. ONCOVIN [Suspect]
     Indication: DIFFUSE LARGE B-CELL LYMPHOMA
  9. PREDNISONE [Suspect]
     Indication: NON-HODGKIN^S LYMPHOMA
     Dosage: UNK
  10. PREDNISONE [Suspect]
     Indication: DIFFUSE LARGE B-CELL LYMPHOMA
  11. RITUXIMAB [Suspect]
     Indication: NON-HODGKIN^S LYMPHOMA
     Dosage: UNK
  12. RITUXIMAB [Suspect]
     Indication: DIFFUSE LARGE B-CELL LYMPHOMA

REACTIONS (1)
  - Pulmonary toxicity [Unknown]
